FAERS Safety Report 13227812 (Version 2)
Quarter: 2017Q1

REPORT INFORMATION
  Report Type: Spontaneous
  Country: US (occurrence: US)
  Receive Date: 20170213
  Receipt Date: 20170306
  Transmission Date: 20170428
  Serious: Yes (Hospitalization)
  Sender: FDA-Public Use
  Company Number: US-ALLERGAN-1704818US

PATIENT
  Age: 50 Year
  Sex: Female

DRUGS (4)
  1. LINZESS [Suspect]
     Active Substance: LINACLOTIDE
     Indication: PRODUCT USED FOR UNKNOWN INDICATION
     Dosage: UNK
     Route: 065
  2. AMPYRA [Suspect]
     Active Substance: DALFAMPRIDINE
     Indication: GAIT DISTURBANCE
  3. AMPYRA [Suspect]
     Active Substance: DALFAMPRIDINE
     Indication: MULTIPLE SCLEROSIS
     Dosage: 10 MG, BID
     Route: 048
  4. DIMETHYL FUMARATE [Suspect]
     Active Substance: DIMETHYL FUMARATE
     Indication: MULTIPLE SCLEROSIS
     Dosage: 240 MG, BID
     Route: 048
     Dates: start: 20150223

REACTIONS (13)
  - Seasonal allergy [Recovered/Resolved]
  - Gastric infection [Unknown]
  - Sleep disorder [Not Recovered/Not Resolved]
  - Hypoaesthesia [Recovered/Resolved]
  - Gait disturbance [Recovered/Resolved]
  - Dehydration [Recovered/Resolved]
  - Gastrointestinal motility disorder [Unknown]
  - Asthenia [Recovered/Resolved]
  - Gastrointestinal disorder [Recovered/Resolved]
  - Nasopharyngitis [Recovered/Resolved]
  - Hypotension [Recovered/Resolved]
  - Upper respiratory tract infection [Recovered/Resolved]
  - Diarrhoea [Recovered/Resolved]

NARRATIVE: CASE EVENT DATE: 20161108
